FAERS Safety Report 6135894-5 (Version None)
Quarter: 2009Q1

REPORT INFORMATION
  Report Type: 
  Country: None (occurrence: None)
  Receive Date: 20090327
  Receipt Date: 20090318
  Transmission Date: 20090719
  Serious: Yes (Hospitalization, Other)
  Sender: FDA-Public Use
  Company Number: GB-MERCK-0903GBR00071

PATIENT
  Age: 9 Year
  Sex: Male

DRUGS (11)
  1. ISENTRESS [Suspect]
     Indication: PROPHYLAXIS AGAINST TRANSPLANT REJECTION
     Route: 048
  2. ABACAVIR SULFATE [Suspect]
     Route: 065
  3. SULFAMETHOXAZOLE AND TRIMETHOPRIM [Suspect]
     Route: 065
  4. DIDANOSINE [Suspect]
     Route: 065
  5. EFAVIRENZ [Suspect]
     Route: 065
  6. LAMIVUDINE [Suspect]
     Route: 065
  7. MYCOPHENOLATE MOFETIL [Suspect]
     Indication: PROPHYLAXIS AGAINST TRANSPLANT REJECTION
     Route: 065
  8. NELFINAVIR MESYLATE [Suspect]
     Route: 065
  9. PREDNISOLONE [Suspect]
     Indication: PROPHYLAXIS AGAINST TRANSPLANT REJECTION
     Route: 065
  10. SIROLIMUS [Suspect]
     Indication: PROPHYLAXIS AGAINST TRANSPLANT REJECTION
     Route: 065
  11. ZIDOVUDINE [Suspect]
     Route: 065

REACTIONS (14)
  - ACUTE HEPATIC FAILURE [None]
  - CACHEXIA [None]
  - DRUG TOXICITY [None]
  - GRAFT DYSFUNCTION [None]
  - HEPATIC ENCEPHALOPATHY [None]
  - HEPATIC FUNCTION ABNORMAL [None]
  - HYPERLIPIDAEMIA [None]
  - HYPERTENSION [None]
  - LYMPHADENOPATHY [None]
  - MYOPATHY [None]
  - PHARYNGITIS [None]
  - RASH [None]
  - RENAL IMPAIRMENT [None]
  - TRANSPLANT REJECTION [None]
